FAERS Safety Report 4960738-4 (Version None)
Quarter: 2006Q2

REPORT INFORMATION
  Report Type: 
  Country: None (occurrence: None)
  Receive Date: 20060403
  Receipt Date: 20060323
  Transmission Date: 20061013
  Serious: Yes (Death, Other)
  Sender: FDA-Public Use
  Company Number: US-MERCK-0603USA03980

PATIENT
  Age: 65 Year
  Sex: Female
  Weight: 85 kg

DRUGS (2)
  1. VIOXX [Suspect]
     Indication: ARTHRITIS
     Route: 048
     Dates: start: 20010701, end: 20020101
  2. VIOXX [Suspect]
     Indication: ARTHRALGIA
     Route: 048
     Dates: start: 20010701, end: 20020101

REACTIONS (4)
  - ASTHENIA [None]
  - DEATH [None]
  - INFECTION [None]
  - MYOCARDIAL INFARCTION [None]
